FAERS Safety Report 4916507-4 (Version None)
Quarter: 2006Q1

REPORT INFORMATION
  Report Type: 
  Country: None (occurrence: None)
  Receive Date: 20060220
  Receipt Date: 20060208
  Transmission Date: 20060701
  Serious: Yes (Hospitalization)
  Sender: FDA-Public Use
  Company Number: PHRM2006FR00731

PATIENT
  Age: 66 Year
  Sex: Female
  Weight: 78 kg

DRUGS (12)
  1. ZOMETA [Suspect]
     Indication: METASTASES TO BONE
     Dosage: 4 MG, QMO
     Route: 042
     Dates: start: 20020517, end: 20040706
  2. ZOMETA [Suspect]
     Dosage: 4 MG, QMO
     Route: 042
     Dates: start: 20050104, end: 20050104
  3. ENDOXAN [Concomitant]
     Indication: METASTASES TO BONE
     Dosage: 1 G, QMO
     Dates: start: 20020517, end: 20030205
  4. UROMITEXAN [Concomitant]
     Indication: METASTASES TO BONE
     Dosage: 1 G, QMO
     Dates: start: 20020517, end: 20030205
  5. MELPHALAN [Concomitant]
     Indication: METASTASES TO BONE
     Dosage: 10 MG DAILY FOR 4 DAYS EVERY MONTH
     Dates: start: 20020517, end: 20030205
  6. DEXAMETHASONE TAB [Concomitant]
     Indication: METASTASES TO BONE
     Dosage: 40 MG DAILY FOR 4 DAYS EVERY MONTH
     Dates: start: 20020517, end: 20030205
  7. LEVOTHYROX [Concomitant]
     Dosage: UNK, UNK
  8. LEXOMIL [Concomitant]
     Dosage: UNK, UNK
  9. STILNOX [Concomitant]
     Dosage: UNK, UNK
  10. ANAFRANIL [Concomitant]
  11. SEVREDOL [Concomitant]
  12. AGREAL [Concomitant]

REACTIONS (9)
  - BONE SWELLING [None]
  - IMPAIRED HEALING [None]
  - OSTEITIS [None]
  - OSTEOLYSIS [None]
  - OSTEONECROSIS [None]
  - PRIMARY SEQUESTRUM [None]
  - PYREXIA [None]
  - TOOTH ABSCESS [None]
  - TOOTH EXTRACTION [None]
